FAERS Safety Report 18945946 (Version 1)
Quarter: 2021Q1

REPORT INFORMATION
  Report Type: Report from Study
  Country: DE (occurrence: DE)
  Receive Date: 20210226
  Receipt Date: 20210226
  Transmission Date: 20210420
  Serious: Yes (Hospitalization)
  Sender: FDA-Public Use
  Company Number: DE-ROCHE-2773348

PATIENT
  Age: 56 Year
  Sex: Female
  Weight: 61 kg

DRUGS (6)
  1. PANTOPRAZOL [Concomitant]
     Active Substance: PANTOPRAZOLE SODIUM
  2. CARBOPLATIN. [Suspect]
     Active Substance: CARBOPLATIN
     Indication: TRIPLE NEGATIVE BREAST CANCER
     Dosage: DATE OF LAST DOSE PRIOR TO SAE: 12/MAY/2020
     Route: 042
     Dates: start: 20200305
  3. ATEZOLIZUMAB. [Suspect]
     Active Substance: ATEZOLIZUMAB
     Indication: TRIPLE NEGATIVE BREAST CANCER
     Dosage: LDATE OF LAST DOSE PRIOR TO SAE: 07/OCT/2020
     Route: 042
     Dates: start: 20200305
  4. PACLITAXEL. [Suspect]
     Active Substance: PACLITAXEL
     Indication: TRIPLE NEGATIVE BREAST CANCER
     Dosage: DATE OF LAST DOSE PRIOR TO SAE: 28/MAY/2020
     Route: 042
     Dates: start: 20200305
  5. CYCLOPHOSPHAMIDE. [Suspect]
     Active Substance: CYCLOPHOSPHAMIDE
     Indication: TRIPLE NEGATIVE BREAST CANCER
     Dosage: DATE OF LAST DOSE PRIOR TO SAE: 15/JUL/2020
     Route: 042
     Dates: start: 20200617
  6. EPIRUBICIN [Suspect]
     Active Substance: EPIRUBICIN
     Indication: TRIPLE NEGATIVE BREAST CANCER
     Dosage: DATE OF LAST DOSE PRIOR TO SAE: 15/JUL/2020
     Route: 042

REACTIONS (1)
  - Myelopathy [Recovering/Resolving]

NARRATIVE: CASE EVENT DATE: 20201022
